FAERS Safety Report 6905308-3 (Version None)
Quarter: 2010Q3

REPORT INFORMATION
  Report Type: 
  Country: None (occurrence: None)
  Receive Date: 20100804
  Receipt Date: 20100715
  Transmission Date: 20110219
  Serious: Yes (Hospitalization, Other)
  Sender: FDA-Public Use
  Company Number: US-RANBAXY-2010US-36416

PATIENT

DRUGS (5)
  1. VERAPAMIL [Suspect]
     Indication: HYPERTENSION
     Dosage: 180 MG, QD
     Route: 048
  2. VERAPAMIL [Suspect]
     Indication: MIGRAINE
  3. VERAPAMIL [Suspect]
     Dosage: 240 MG, QD
     Route: 048
  4. VERAPAMIL [Suspect]
  5. TYLENOL [Concomitant]
     Indication: PRODUCT USED FOR UNKNOWN INDICATION
     Route: 065

REACTIONS (5)
  - BLOOD PRESSURE INADEQUATELY CONTROLLED [None]
  - CONSTIPATION [None]
  - DRUG INEFFECTIVE [None]
  - INFECTION [None]
  - OEDEMA [None]
